FAERS Safety Report 20987250 (Version 1)
Quarter: 2022Q2

REPORT INFORMATION
  Report Type: Spontaneous
  Country: US (occurrence: None)
  Receive Date: 20220617
  Receipt Date: 20220617
  Transmission Date: 20220720
  Serious: Yes (Other)
  Sender: FDA-Public Use
  Company Number: None

PATIENT
  Age: 47 Year
  Sex: Male
  Weight: 128.37 kg

DRUGS (1)
  1. BEBTELOVIMAB [Suspect]
     Active Substance: BEBTELOVIMAB
     Indication: SARS-CoV-2 test positive
     Dosage: 175MG  X1 INTRAVENOUS ?
     Route: 042
     Dates: start: 20220617, end: 20220617

REACTIONS (4)
  - Syncope [None]
  - Hypotension [None]
  - Tachycardia [None]
  - Hyperhidrosis [None]

NARRATIVE: CASE EVENT DATE: 20220617
